FAERS Safety Report 14227734 (Version 1)
Quarter: 2017Q4

REPORT INFORMATION
  Report Type: Spontaneous
  Country: CN (occurrence: CN)
  Receive Date: 20171127
  Receipt Date: 20171127
  Transmission Date: 20180321
  Serious: Yes (Hospitalization, Other)
  Sender: FDA-Public Use
  Company Number: CN-BAYER-2017-221770

PATIENT
  Age: 61 Year
  Sex: Male

DRUGS (5)
  1. GAMMA GLOBULIN [IMMUNOGLOBULIN] [Concomitant]
  2. AVELOX [Suspect]
     Active Substance: MOXIFLOXACIN HYDROCHLORIDE
     Indication: PNEUMONIA
     Dosage: UNK
     Dates: start: 20170218, end: 20170226
  3. SULPERAZONE [Concomitant]
     Active Substance: CEFOPERAZONE SODIUM\SULBACTAM SODIUM
     Indication: PNEUMONIA
     Dosage: UNK
     Dates: start: 20170227, end: 20170302
  4. TIENAM [Suspect]
     Active Substance: CILASTATIN SODIUM\IMIPENEM
     Indication: PNEUMONIA
     Dosage: UNK
     Dates: start: 20170218, end: 20170226
  5. PIPERACILLIN AND TAZOBACTAM [Concomitant]
     Active Substance: PIPERACILLIN SODIUM\TAZOBACTAM SODIUM
     Indication: PNEUMONIA
     Dosage: UNK
     Dates: start: 20170303, end: 20170327

REACTIONS (6)
  - Cholelithiasis [Recovering/Resolving]
  - Schistosomiasis liver [Recovering/Resolving]
  - Nephrolithiasis [Recovering/Resolving]
  - Dyspnoea [Recovering/Resolving]
  - Pneumonia acinetobacter [Recovering/Resolving]
  - Dyspnoea [Recovering/Resolving]

NARRATIVE: CASE EVENT DATE: 201702
